FAERS Safety Report 4715526-0 (Version None)
Quarter: 2005Q3

REPORT INFORMATION
  Report Type: 
  Country: None (occurrence: None)
  Receive Date: 20050718
  Receipt Date: 20050706
  Transmission Date: 20060218
  Serious: Yes (Other)
  Sender: FDA-Public Use
  Company Number: US-JNJFOC-20050300533

PATIENT
  Sex: Female
  Weight: 68.95 kg

DRUGS (8)
  1. REMICADE [Suspect]
     Dosage: 4 VIALS
     Route: 042
  2. REMICADE [Suspect]
     Indication: RHEUMATOID ARTHRITIS
     Dosage: 3 VIALS
     Route: 042
  3. ACCUPRIL [Concomitant]
  4. PLAQUENIL [Concomitant]
     Indication: RHEUMATOID ARTHRITIS
  5. LIPITOR [Concomitant]
  6. EVISTA [Concomitant]
     Indication: OSTEOPOROSIS
  7. ARAVA [Concomitant]
     Indication: RHEUMATOID ARTHRITIS
  8. ZEPRAMEL [Concomitant]
     Indication: BLOOD PRESSURE

REACTIONS (2)
  - INTERVERTEBRAL DISC PROTRUSION [None]
  - SPONDYLITIS [None]
